FAERS Safety Report 8252113-4 (Version None)
Quarter: 2012Q2

REPORT INFORMATION
  Report Type: 
  Country: None (occurrence: None)
  Receive Date: 20120402
  Receipt Date: 20110719
  Transmission Date: 20120825
  Serious: No
  Sender: FDA-Public Use
  Company Number: US-ABBOTT-10P-163-0800563-00

PATIENT
  Sex: Male
  Weight: 106.69 kg

DRUGS (4)
  1. ERYTHROMYCIN [Concomitant]
     Indication: ECZEMA
  2. ANDROGEL [Suspect]
     Dosage: DAILY DOSE: 5 GRAM(S) VIA PUMP
     Route: 062
     Dates: end: 20100426
  3. ANDROGEL [Suspect]
     Dosage: DAILY DOSE: 2.5 GRAM(S) VIA PUMP
     Route: 062
     Dates: start: 20100427
  4. ANDROGEL [Suspect]
     Indication: BLOOD TESTOSTERONE DECREASED
     Route: 062
     Dates: end: 20110715

REACTIONS (1)
  - BLOOD TESTOSTERONE INCREASED [None]
